FAERS Safety Report 4729708-5 (Version None)
Quarter: 2005Q3

REPORT INFORMATION
  Report Type: 
  Country: None (occurrence: None)
  Receive Date: 20050801
  Receipt Date: 20050630
  Transmission Date: 20060218
  Serious: Yes (Hospitalization, Other)
  Sender: FDA-Public Use
  Company Number: US-MERCK-0507USA00135

PATIENT
  Age: 46 Year
  Sex: Male
  Weight: 95 kg

DRUGS (3)
  1. VIOXX [Suspect]
     Indication: INTERVERTEBRAL DISC PROTRUSION
     Route: 048
     Dates: start: 20030123, end: 20040413
  2. ALLOPURINOL [Concomitant]
     Indication: GOUT
     Route: 048
     Dates: start: 20020219
  3. METHOCARBAMOL [Concomitant]
     Indication: BACK PAIN
     Route: 048
     Dates: start: 20030117

REACTIONS (5)
  - ANXIETY [None]
  - DEPRESSION [None]
  - HYPERLIPIDAEMIA [None]
  - PINEAL GERMINOMA [None]
  - TRANSIENT ISCHAEMIC ATTACK [None]
